FAERS Safety Report 24710936 (Version 4)
Quarter: 2025Q3

REPORT INFORMATION
  Report Type: Spontaneous
  Country: JP (occurrence: JP)
  Receive Date: 20241209
  Receipt Date: 20250809
  Transmission Date: 20251020
  Serious: Yes (Other)
  Sender: ALEXION PHARMACEUTICALS
  Company Number: JP-ASTRAZENECA-240120061_063010_P_1

PATIENT
  Age: 71 Year
  Sex: Female
  Weight: 74 kg

DRUGS (20)
  1. DAPAGLIFLOZIN [Suspect]
     Active Substance: DAPAGLIFLOZIN
     Indication: Type 2 diabetes mellitus
     Dosage: 5 MILLIGRAM, QD
     Dates: start: 20240326, end: 20240927
  2. DAPAGLIFLOZIN [Suspect]
     Active Substance: DAPAGLIFLOZIN
     Dosage: 5 MILLIGRAM, QD
     Dates: start: 20241022
  3. METFORMIN HYDROCHLORIDE [Concomitant]
     Active Substance: METFORMIN HYDROCHLORIDE
     Indication: Type 2 diabetes mellitus
     Dosage: 500 MILLIGRAM, TID
  4. METFORMIN HYDROCHLORIDE [Concomitant]
     Active Substance: METFORMIN HYDROCHLORIDE
     Dosage: 250 MILLIGRAM, TID
  5. METFORMIN HYDROCHLORIDE [Concomitant]
     Active Substance: METFORMIN HYDROCHLORIDE
     Dosage: 750 MILLIGRAM
     Dates: start: 20240326
  6. RABEPRAZOLE SODIUM [Concomitant]
     Active Substance: RABEPRAZOLE SODIUM
     Dosage: 10 MILLIGRAM, QD
     Dates: start: 20240326
  7. EZETIMIBE [Concomitant]
     Active Substance: EZETIMIBE
     Dosage: 10 MILLIGRAM, QD
     Dates: start: 20240326
  8. LOSARTAN POTASSIUM [Concomitant]
     Active Substance: LOSARTAN POTASSIUM
     Dosage: 50 MILLIGRAM, QD
     Dates: start: 20240326
  9. VICTOZA [Concomitant]
     Active Substance: LIRAGLUTIDE
     Route: 065
  10. VICTOZA [Concomitant]
     Active Substance: LIRAGLUTIDE
     Indication: Type 2 diabetes mellitus
     Dosage: 1.8 MILLIGRAM, QD
     Route: 065
     Dates: start: 20240326, end: 20241022
  11. MOUNJARO [Concomitant]
     Active Substance: TIRZEPATIDE
     Route: 065
  12. MOUNJARO [Concomitant]
     Active Substance: TIRZEPATIDE
     Indication: Type 2 diabetes mellitus
     Dates: start: 20241022, end: 20241119
  13. MOUNJARO [Concomitant]
     Active Substance: TIRZEPATIDE
     Dosage: 5 MILLIGRAM, QW
     Dates: start: 20241120
  14. ZINC [Concomitant]
     Active Substance: ZINC
     Dosage: 50 MILLIGRAM, BID
     Dates: start: 20240326, end: 20240422
  15. ZINC [Concomitant]
     Active Substance: ZINC
     Dosage: 50 MILLIGRAM, BID
     Dates: start: 20240422
  16. VIBEGRON [Concomitant]
     Active Substance: VIBEGRON
     Dosage: 50 MILLIGRAM, QD
     Dates: start: 20240326
  17. GLICLAZIDE [Concomitant]
     Active Substance: GLICLAZIDE
     Dosage: 20 MILLIGRAM, QD
     Dates: start: 20240617
  18. GLICLAZIDE [Concomitant]
     Active Substance: GLICLAZIDE
     Indication: Type 2 diabetes mellitus
  19. NIFEDIPINE [Concomitant]
     Active Substance: NIFEDIPINE
  20. ZINC ACETATE [Concomitant]
     Active Substance: ZINC ACETATE

REACTIONS (2)
  - Pruritus genital [Not Recovered/Not Resolved]
  - Vulvitis [Not Recovered/Not Resolved]

NARRATIVE: CASE EVENT DATE: 20240706
